FAERS Safety Report 5991018-6 (Version None)
Quarter: 2008Q4

REPORT INFORMATION
  Report Type: 
  Country: None (occurrence: None)
  Receive Date: 20081211
  Receipt Date: 20081208
  Transmission Date: 20090506
  Serious: Yes (Disabling)
  Sender: FDA-Public Use
  Company Number: US-MERCK-0810USA03386

PATIENT
  Age: 45 Month
  Sex: Male
  Weight: 18 kg

DRUGS (3)
  1. SINGULAIR [Suspect]
     Indication: ASTHMA
     Route: 048
     Dates: start: 20050301, end: 20070501
  2. SINGULAIR [Suspect]
     Indication: OBSTRUCTIVE AIRWAYS DISORDER
     Route: 048
     Dates: start: 20050301, end: 20070501
  3. NASONEX [Concomitant]
     Route: 065

REACTIONS (2)
  - DEPRESSION [None]
  - SUICIDAL IDEATION [None]
